FAERS Safety Report 8768041 (Version 5)
Quarter: 2014Q2

REPORT INFORMATION
  Report Type: Spontaneous
  Country: US (occurrence: US)
  Receive Date: 20120906
  Receipt Date: 20140502
  Transmission Date: 20141212
  Serious: Yes (Hospitalization)
  Sender: FDA-Public Use
  Company Number: US-B.I. PHARMACEUTICALS,INC./RIDGEFIELD-2012-BP-21276BP

PATIENT
  Age: 77 Year
  Sex: Male
  Weight: 117.93 kg

DRUGS (21)
  1. PRADAXA [Suspect]
     Indication: ANTICOAGULANT THERAPY
     Dosage: 300 MG
     Route: 065
     Dates: start: 20101105, end: 20110802
  2. PRADAXA [Suspect]
     Indication: ATRIAL FIBRILLATION
  3. COREG [Concomitant]
     Route: 065
     Dates: start: 2011
  4. LASIX [Concomitant]
     Route: 065
     Dates: start: 2010
  5. LANTUS [Concomitant]
     Route: 065
     Dates: start: 2011
  6. APIDRA [Concomitant]
     Route: 058
     Dates: start: 2010
  7. LISINOPRIL [Concomitant]
     Route: 065
     Dates: start: 2011
  8. NIASPAN [Concomitant]
     Route: 065
     Dates: start: 2011
  9. KCL [Concomitant]
     Route: 065
     Dates: start: 2011
  10. MIRAPEX [Concomitant]
     Route: 065
     Dates: start: 2010
  11. ROPINIROLE [Concomitant]
     Route: 065
  12. GABAPENTIN [Concomitant]
     Route: 065
     Dates: start: 2011
  13. SPIRONOLACTONE [Concomitant]
     Route: 065
     Dates: start: 2011
  14. BUMETANIDE [Concomitant]
     Route: 065
     Dates: start: 2011
  15. METOLAZONE [Concomitant]
     Route: 065
     Dates: start: 2010
  16. JANUVIA [Concomitant]
     Route: 065
     Dates: start: 2010
  17. SPIRIVA [Concomitant]
     Route: 065
     Dates: start: 2011
  18. ALBUTEROL [Concomitant]
     Route: 065
  19. NITROGLYCERIN [Concomitant]
     Route: 065
  20. GLIPIZIDE [Concomitant]
     Route: 065
     Dates: start: 2010
  21. LEVITRA [Concomitant]
     Route: 065
     Dates: start: 2008

REACTIONS (6)
  - Lower gastrointestinal haemorrhage [Unknown]
  - Haemorrhagic anaemia [Unknown]
  - Renal failure acute [Unknown]
  - Coagulation time prolonged [Unknown]
  - Haemoptysis [Recovered/Resolved]
  - Anaemia [Unknown]
